FAERS Safety Report 4426517-1 (Version None)
Quarter: 2004Q3

REPORT INFORMATION
  Report Type: 
  Country: None (occurrence: None)
  Receive Date: 20040816
  Receipt Date: 20040805
  Transmission Date: 20050211
  Serious: Yes (Other)
  Sender: FDA-Public Use
  Company Number: PHNU2004DE02743

PATIENT
  Age: 61 Year
  Sex: Male

DRUGS (5)
  1. ZOMETA [Suspect]
     Indication: PLASMACYTOMA
     Dates: start: 20021120, end: 20040622
  2. DEXA ^CT-ARZNEIMITTEL^ [Concomitant]
     Dates: start: 20021113, end: 20030204
  3. ENOXAPARIN SODIUM [Concomitant]
     Dates: start: 20021206, end: 20030304
  4. DOXORUBICIN HCL [Concomitant]
     Dates: start: 20021125, end: 20021128
  5. ADRIBLASTIN [Concomitant]
     Dates: start: 20021230, end: 20030130

REACTIONS (9)
  - BONE CYST [None]
  - IMPAIRED HEALING [None]
  - LOCAL ANAESTHESIA [None]
  - ORAL SURGERY [None]
  - OSTEOMYELITIS [None]
  - PERIODONTITIS [None]
  - SEQUESTRECTOMY [None]
  - TOOTH EXTRACTION [None]
  - TOOTH IMPACTED [None]
